FAERS Safety Report 4413302-X (Version None)
Quarter: 2004Q3

REPORT INFORMATION
  Report Type: 
  Country: None (occurrence: None)
  Receive Date: 20040802
  Receipt Date: 20040114
  Transmission Date: 20050211
  Serious: Yes (Hospitalization)
  Sender: FDA-Public Use
  Company Number: PHRM2004FR00538

PATIENT
  Age: 54 Year
  Sex: Male

DRUGS (1)
  1. NEORAL [Suspect]
     Indication: RENAL TRANSPLANT
     Route: 048
     Dates: start: 19900615, end: 20040115

REACTIONS (9)
  - ATAXIA [None]
  - BLOOD CREATININE INCREASED [None]
  - DEMYELINATION [None]
  - DIFFICULTY IN WALKING [None]
  - HYPERTENSION [None]
  - MUSCULAR WEAKNESS [None]
  - NEUROPATHY PERIPHERAL [None]
  - PAIN IN EXTREMITY [None]
  - SENSORIMOTOR DISORDER [None]
